FAERS Safety Report 12263190 (Version 1)
Quarter: 2016Q2

REPORT INFORMATION
  Report Type: Spontaneous
  Country: US (occurrence: US)
  Receive Date: 20160413
  Receipt Date: 20160413
  Transmission Date: 20160815
  Serious: No
  Sender: FDA-Public Use
  Company Number: US-ASTRAZENECA-2016SE29005

PATIENT
  Age: 751 Month
  Sex: Female
  Weight: 95.3 kg

DRUGS (6)
  1. FASLODEX [Suspect]
     Active Substance: FULVESTRANT
     Indication: BREAST CANCER METASTATIC
     Route: 030
     Dates: start: 2014, end: 201601
  2. BISOPROLOL [Concomitant]
     Active Substance: BISOPROLOL
     Indication: CARDIOVASCULAR EVENT PROPHYLAXIS
     Route: 048
  3. FASLODEX [Suspect]
     Active Substance: FULVESTRANT
     Indication: BREAST CANCER METASTATIC
     Dosage: 250 MG, ON DAY 1, 15, AND 29 OR EVERY TWO WEEKS FOR THE FIRST THREE DOSES AND THEN MONTHLY
     Route: 030
     Dates: start: 2014
  4. FASLODEX [Suspect]
     Active Substance: FULVESTRANT
     Indication: BREAST CANCER METASTATIC
     Route: 030
     Dates: start: 201601
  5. TAMOXIFEN [Concomitant]
     Active Substance: TAMOXIFEN
     Indication: BREAST CANCER FEMALE
     Route: 065
  6. SYNTHROID [Concomitant]
     Active Substance: LEVOTHYROXINE SODIUM
     Indication: THYROID DISORDER
     Route: 048
     Dates: start: 2010

REACTIONS (12)
  - Pruritus [Unknown]
  - Oropharyngeal discomfort [Unknown]
  - Muscle spasms [Unknown]
  - Cough [Unknown]
  - Heart rate increased [Unknown]
  - Fatigue [Unknown]
  - Flushing [Unknown]
  - Intentional product misuse [Unknown]
  - Injection site haemorrhage [Unknown]
  - Injection site pain [Unknown]
  - Hypertension [Unknown]
  - Drug hypersensitivity [Unknown]

NARRATIVE: CASE EVENT DATE: 201410
